FAERS Safety Report 17521971 (Version 2)
Quarter: 2020Q2

REPORT INFORMATION
  Report Type: Spontaneous
  Country: US (occurrence: US)
  Receive Date: 20200310
  Receipt Date: 20200429
  Transmission Date: 20200713
  Serious: No
  Sender: FDA-Public Use
  Company Number: US-FARMAPROD-201911-1892

PATIENT
  Sex: Male

DRUGS (1)
  1. OXERVATE [Suspect]
     Active Substance: CENEGERMIN-BKBJ
     Indication: NEUROTROPHIC KERATOPATHY
     Route: 047

REACTIONS (6)
  - Headache [Unknown]
  - Product dose omission [Unknown]
  - Eye pain [Unknown]
  - Periorbital pain [Unknown]
  - Eyelid pain [Unknown]
  - Herpes zoster [Unknown]
